FAERS Safety Report 7897372-2 (Version None)
Quarter: 2011Q4

REPORT INFORMATION
  Report Type: 
  Country: None (occurrence: None)
  Receive Date: 20111107
  Receipt Date: 20111031
  Transmission Date: 20120403
  Serious: Yes (Other)
  Sender: FDA-Public Use
  Company Number: US-ASTRAZENECA-2007UW01081

PATIENT
  Sex: Male
  Weight: 21.5 kg

DRUGS (29)
  1. SEROQUEL [Suspect]
     Route: 048
     Dates: start: 20020307, end: 20020508
  2. SEROQUEL [Suspect]
     Route: 048
     Dates: start: 20021118, end: 20030102
  3. SEROQUEL [Suspect]
     Route: 048
     Dates: start: 20021118, end: 20030102
  4. RISPERDAL [Suspect]
     Route: 065
     Dates: start: 20020227, end: 20020307
  5. PROZAC [Concomitant]
     Dates: start: 20011101
  6. SEROQUEL [Suspect]
     Indication: ANXIETY
     Dosage: 50 MG TO 600 MG
     Route: 048
     Dates: start: 20020307
  7. SEROQUEL [Suspect]
     Indication: OBSESSIVE-COMPULSIVE DISORDER
     Dosage: 50 MG TO 600 MG
     Route: 048
     Dates: start: 20020307
  8. URECHOLINE [Concomitant]
     Dates: start: 19910101
  9. ZOLOFT [Concomitant]
     Dates: start: 20010111
  10. SEROQUEL [Suspect]
     Route: 048
     Dates: start: 20020508, end: 20020619
  11. RISPERDAL [Suspect]
     Route: 065
     Dates: end: 20010109
  12. TAGAMET [Concomitant]
     Dates: start: 19910101
  13. SEROQUEL [Suspect]
     Route: 048
     Dates: start: 20020307, end: 20020508
  14. SEROQUEL [Suspect]
     Route: 048
     Dates: start: 20020508, end: 20020619
  15. RISPERDAL [Suspect]
     Indication: OBSESSIVE-COMPULSIVE DISORDER
     Dosage: 0.25 TO 0.50 MG
     Route: 065
     Dates: start: 20011101
  16. ZANTAC [Concomitant]
     Dosage: 2 CC PO TID
     Route: 048
     Dates: start: 20020201
  17. SEROQUEL [Suspect]
     Route: 048
     Dates: start: 20021011, end: 20021118
  18. RISPERDAL [Suspect]
     Route: 065
     Dates: start: 20011102, end: 20020227
  19. EFFEXOR [Concomitant]
     Dosage: 75
  20. ZOLOFT [Concomitant]
     Dates: start: 20020101
  21. SEROQUEL [Suspect]
     Route: 048
     Dates: start: 20030102, end: 20030707
  22. RISPERDAL [Suspect]
     Route: 065
     Dates: end: 20010109
  23. RISPERDAL [Suspect]
     Route: 065
     Dates: start: 20011102, end: 20020227
  24. SEROQUEL [Suspect]
     Route: 048
     Dates: start: 20021011, end: 20021118
  25. SEROQUEL [Suspect]
     Route: 048
     Dates: start: 20030102, end: 20030707
  26. RISPERDAL [Suspect]
     Indication: ANXIETY
     Dosage: 0.25 TO 0.50 MG
     Route: 065
     Dates: start: 20011101
  27. RISPERDAL [Suspect]
     Route: 065
     Dates: start: 20020227, end: 20020307
  28. PAXIL [Concomitant]
     Dates: end: 20011101
  29. BENADRYL [Concomitant]
     Dates: end: 20110109

REACTIONS (5)
  - OVERWEIGHT [None]
  - AGITATION [None]
  - TYPE 1 DIABETES MELLITUS [None]
  - WEIGHT INCREASED [None]
  - GYNAECOMASTIA [None]
